FAERS Safety Report 8482310-4 (Version None)
Quarter: 2012Q3

REPORT INFORMATION
  Report Type: 
  Country: None (occurrence: None)
  Receive Date: 20120702
  Receipt Date: 20120625
  Transmission Date: 20120928
  Serious: Yes (Other)
  Sender: FDA-Public Use
  Company Number: IT-ROXANE LABORATORIES, INC.-2012-RO-01472RO

PATIENT
  Age: 72 Year
  Sex: Male

DRUGS (11)
  1. RISPERIDONE [Suspect]
     Indication: SOMATIC DELUSION
     Dosage: 1 MG
     Route: 048
  2. REPAGLINIDE [Suspect]
  3. RISPERIDONE [Suspect]
     Dosage: 2 MG
     Route: 048
  4. CLONIDINE [Suspect]
  5. SODIUM POLYSTYRENE SULFONATE [Suspect]
  6. ATORVASTATIN [Suspect]
  7. ARIPIPRAZOLE [Suspect]
     Indication: SOMATIC DELUSION
     Dosage: 15 MG
  8. CALCIUM ACETATE [Suspect]
  9. INSULIN [Suspect]
     Indication: TYPE 2 DIABETES MELLITUS
  10. DOXAZOSIN MESYLATE [Suspect]
  11. AMLODIPINE [Suspect]

REACTIONS (4)
  - SOMATIC DELUSION [None]
  - SEDATION [None]
  - DRUG INEFFECTIVE [None]
  - MIDDLE INSOMNIA [None]
